FAERS Safety Report 12362962 (Version 2)
Quarter: 2020Q1

REPORT INFORMATION
  Report Type: Spontaneous
  Country: US (occurrence: US)
  Receive Date: 20160512
  Receipt Date: 20200110
  Transmission Date: 20200409
  Serious: No
  Sender: FDA-Public Use
  Company Number: US-UCBSA-2014013153

PATIENT
  Age: 29 Year
  Sex: Female
  Weight: 79.37 kg

DRUGS (2)
  1. CIMZIA [Suspect]
     Active Substance: CERTOLIZUMAB PEGOL
     Dosage: 200 MG, EV 2 WEEKS(QOW)
     Route: 058
  2. CIMZIA [Suspect]
     Active Substance: CERTOLIZUMAB PEGOL
     Indication: RHEUMATOID ARTHRITIS
     Dosage: 400 MG, EV 4 WEEKS, AND THEN MAINTAINENCE DOSE 200 MG EVERY 2 WEEKS
     Dates: start: 20140917

REACTIONS (2)
  - Maternal exposure during pregnancy [Unknown]
  - Cholestasis [Unknown]

NARRATIVE: CASE EVENT DATE: 20140917
